FAERS Safety Report 9517177 (Version 2)
Quarter: 2013Q3

REPORT INFORMATION
  Report Type: Spontaneous
  Country: US (occurrence: US)
  Receive Date: 20130911
  Receipt Date: 20130919
  Transmission Date: 20140515
  Serious: No
  Sender: FDA-Public Use
  Company Number: US-PFIZER INC-2013260096

PATIENT
  Age: 41 Year
  Sex: Female

DRUGS (15)
  1. ZOLOFT [Suspect]
     Dosage: UNK
  2. XANAX [Suspect]
     Dosage: UNK
  3. NEURONTIN [Suspect]
     Dosage: UNK
  4. MORPHINE SULFATE [Suspect]
     Dosage: UNK
  5. ROBAXIN [Suspect]
     Dosage: UNK
  6. ETODOLAC [Suspect]
     Dosage: UNK
  7. TRAMADOL HYDROCHLORIDE [Suspect]
     Dosage: UNK
  8. WELLBUTRIN [Suspect]
     Dosage: UNK
  9. PROZAC [Suspect]
     Dosage: UNK
  10. FLEXERIL [Suspect]
     Dosage: UNK
  11. AMBIEN [Suspect]
     Dosage: UNK
  12. CELEXA [Suspect]
     Dosage: UNK
  13. CYMBALTA [Suspect]
     Dosage: UNK
  14. LEXAPRO [Suspect]
     Dosage: UNK
  15. LUNESTA [Suspect]
     Dosage: UNK

REACTIONS (1)
  - Drug hypersensitivity [Unknown]
